FAERS Safety Report 20777291 (Version 1)
Quarter: 2022Q2

REPORT INFORMATION
  Report Type: Spontaneous
  Country: PK (occurrence: PK)
  Receive Date: 20220503
  Receipt Date: 20220503
  Transmission Date: 20220721
  Serious: Yes (Hospitalization)
  Sender: FDA-Public Use
  Company Number: PK-LUPIN PHARMACEUTICALS INC.-2022-06381

PATIENT
  Age: 55 Year
  Sex: Male

DRUGS (3)
  1. MOXIFLOXACIN [Suspect]
     Active Substance: MOXIFLOXACIN
     Indication: Lymph node tuberculosis
     Dosage: 400 MILLIGRAM, QD
     Route: 065
  2. RIFATER [Suspect]
     Active Substance: ISONIAZID\PYRAZINAMIDE\RIFAMPIN
     Indication: Tuberculosis
     Dosage: 6 DOSAGE FORM
     Route: 065
  3. PYRIDOXINE [Concomitant]
     Active Substance: PYRIDOXINE
     Indication: Lymph node tuberculosis
     Dosage: 25 MG, QD
     Route: 065

REACTIONS (2)
  - Jarisch-Herxheimer reaction [Recovered/Resolved]
  - Paradoxical drug reaction [Recovered/Resolved]
